FAERS Safety Report 6828488-7 (Version None)
Quarter: 2010Q3

REPORT INFORMATION
  Report Type: 
  Country: None (occurrence: None)
  Receive Date: 20100709
  Receipt Date: 20070212
  Transmission Date: 20110219
  Serious: No
  Sender: FDA-Public Use
  Company Number: US-PFIZER INC-2007012202

PATIENT
  Sex: Female
  Weight: 81.65 kg

DRUGS (4)
  1. CHANTIX [Suspect]
     Indication: SMOKING CESSATION THERAPY
     Route: 048
     Dates: start: 20070207
  2. LISINOPRIL [Concomitant]
     Indication: CARDIOVASCULAR DISORDER
  3. ATENOLOL [Concomitant]
     Indication: CARDIOVASCULAR DISORDER
  4. CELEBREX [Concomitant]

REACTIONS (1)
  - POOR QUALITY SLEEP [None]
